FAERS Safety Report 19862399 (Version 2)
Quarter: 2021Q3

REPORT INFORMATION
  Report Type: Spontaneous
  Country: ES (occurrence: ES)
  Receive Date: 20210921
  Receipt Date: 20210928
  Transmission Date: 20211014
  Serious: Yes (Other)
  Sender: FDA-Public Use
  Company Number: ES-PFIZER INC-202101207363

PATIENT
  Age: 63 Year
  Sex: Female

DRUGS (3)
  1. DEXAMETHASONE. [Suspect]
     Active Substance: DEXAMETHASONE
     Indication: ACQUIRED VON WILLEBRAND^S DISEASE
     Dosage: UNK, CYCLIC
     Dates: start: 2016
  2. BORTEZOMIB. [Suspect]
     Active Substance: BORTEZOMIB
     Indication: ACQUIRED VON WILLEBRAND^S DISEASE
     Dosage: UNK, CYCLIC
     Route: 058
     Dates: start: 2016
  3. RITUXIMAB. [Suspect]
     Active Substance: RITUXIMAB
     Indication: ACQUIRED VON WILLEBRAND^S DISEASE
     Dosage: UNK
     Dates: start: 2016

REACTIONS (5)
  - Blood immunoglobulin M increased [Recovering/Resolving]
  - Condition aggravated [Recovering/Resolving]
  - Haemorrhage [Recovering/Resolving]
  - Off label use [Unknown]
  - Acquired Von Willebrand^s disease [Recovering/Resolving]

NARRATIVE: CASE EVENT DATE: 2016
